FAERS Safety Report 20911026 (Version 2)
Quarter: 2022Q2

REPORT INFORMATION
  Report Type: Spontaneous
  Country: GB (occurrence: None)
  Receive Date: 20220603
  Receipt Date: 20220622
  Transmission Date: 20220720
  Serious: Yes (Hospitalization)
  Sender: FDA-Public Use
  Company Number: 2022A204097

PATIENT
  Sex: Female

DRUGS (13)
  1. DURVALUMAB [Suspect]
     Active Substance: DURVALUMAB
     Indication: Malignant melanoma
     Dosage: 20.0 MG/KG
     Route: 042
     Dates: start: 20180817, end: 20180817
  2. TEBENTAFUSP [Suspect]
     Active Substance: TEBENTAFUSP
     Indication: Malignant melanoma
     Dosage: 20.0 MICROGRAM, SINGLE
     Route: 042
     Dates: start: 20180703, end: 20180703
  3. TEBENTAFUSP [Suspect]
     Active Substance: TEBENTAFUSP
     Indication: Malignant melanoma
     Dosage: 20.0 MICROGRAM, SINGLE
     Route: 042
     Dates: start: 20180717, end: 20180717
  4. TEBENTAFUSP [Suspect]
     Active Substance: TEBENTAFUSP
     Indication: Malignant melanoma
     Dosage: 20.0 MICROGRAM, SINGLE
     Route: 042
     Dates: start: 20180723, end: 20180723
  5. BECLOMETHASONE DIPROPIONATE [Concomitant]
     Active Substance: BECLOMETHASONE DIPROPIONATE
     Indication: Product used for unknown indication
  6. DEXTROMETHORPHAN HYDROBROMIDE/AMMONIUM CHLORIDE/DEXCHLORPHENIRAMINE MA [Concomitant]
     Indication: Product used for unknown indication
     Dosage: UNK
     Dates: start: 2007
  7. COCODAMOL [Concomitant]
     Active Substance: ACETAMINOPHEN\CODEINE PHOSPHATE
     Indication: Product used for unknown indication
     Dosage: UNK
     Dates: start: 2012
  8. GAVISCON [Concomitant]
     Active Substance: ALUMINUM HYDROXIDE\MAGNESIUM CARBONATE
     Indication: Product used for unknown indication
     Dosage: UNK
     Dates: start: 20180611
  9. WOOL FAT/GLYCEROL/MINERAL OIL EMULSION [Concomitant]
     Indication: Product used for unknown indication
  10. BORIC ACID/PETROLATUM [Concomitant]
     Indication: Product used for unknown indication
  11. VENTOLIN [Concomitant]
     Active Substance: ALBUTEROL SULFATE
     Indication: Product used for unknown indication
     Dosage: UNK
     Dates: start: 2007
  12. CHLORPHENIRAMINE MALEATE [Concomitant]
     Active Substance: CHLORPHENIRAMINE MALEATE
     Dosage: UNK
     Dates: start: 201605
  13. CETRABEN EMOLLIENT [Concomitant]

REACTIONS (7)
  - Cytokine release syndrome [Recovered/Resolved]
  - Swelling face [Recovered/Resolved]
  - Eye swelling [Recovered/Resolved]
  - Pyrexia [Recovered/Resolved]
  - Tachycardia [Recovered/Resolved]
  - Pain [Recovered/Resolved]
  - Rash [Recovered/Resolved]

NARRATIVE: CASE EVENT DATE: 20180704
